FAERS Safety Report 15682438 (Version 1)
Quarter: 2018Q4

REPORT INFORMATION
  Report Type: Other
  Country: CZ (occurrence: CZ)
  Receive Date: 20181203
  Receipt Date: 20181203
  Transmission Date: 20190205
  Serious: Yes (Other)
  Sender: FDA-Public Use
  Company Number: CZ-ARBOR PHARMACEUTICALS, LLC-CZ-2018ARB001206

PATIENT
  Age: 34 Year
  Sex: Female

DRUGS (1)
  1. CIPROFLOXACIN\FLUOCINOLONE ACETONIDE [Suspect]
     Active Substance: CIPROFLOXACIN\FLUOCINOLONE ACETONIDE
     Indication: OTITIS EXTERNA
     Dosage: 2 GTT, QID
     Route: 001
     Dates: start: 20181031, end: 20181105

REACTIONS (4)
  - Headache [Unknown]
  - Tinnitus [Unknown]
  - Hypoacusis [Unknown]
  - Ear pain [Unknown]

NARRATIVE: CASE EVENT DATE: 20181031
